FAERS Safety Report 9005143 (Version 1)
Quarter: 2013Q1

REPORT INFORMATION
  Report Type: Spontaneous
  Country: FR (occurrence: FR)
  Receive Date: 20130109
  Receipt Date: 20130109
  Transmission Date: 20140127
  Serious: Yes (Hospitalization)
  Sender: FDA-Public Use
  Company Number: FR-SANOFI-AVENTIS-2013SA001117

PATIENT
  Age: 76 Year
  Sex: Female

DRUGS (10)
  1. PLAVIX [Suspect]
     Indication: PRODUCT USED FOR UNKNOWN INDICATION
     Route: 048
     Dates: end: 20121121
  2. KARDEGIC [Interacting]
     Indication: PRODUCT USED FOR UNKNOWN INDICATION
     Route: 048
     Dates: end: 20121121
  3. ACENOCOUMAROL [Interacting]
     Indication: PRODUCT USED FOR UNKNOWN INDICATION
     Route: 048
     Dates: end: 20121121
  4. LANTUS [Concomitant]
  5. NOVONORM [Concomitant]
  6. NOVORAPID [Concomitant]
  7. INEXIUM [Concomitant]
  8. MODOPAR [Concomitant]
  9. LYSANXIA [Concomitant]
  10. CORDARONE [Concomitant]

REACTIONS (4)
  - International normalised ratio increased [Recovered/Resolved]
  - Drug interaction [Unknown]
  - Haematemesis [Recovered/Resolved]
  - Anaemia [Recovered/Resolved]
